FAERS Safety Report 17094536 (Version 1)
Quarter: 2019Q4

REPORT INFORMATION
  Report Type: Report from Study
  Country: AE (occurrence: AE)
  Receive Date: 20191129
  Receipt Date: 20191129
  Transmission Date: 20200122
  Serious: Yes (Other)
  Sender: FDA-Public Use
  Company Number: AE-ACCORD-162389

PATIENT
  Age: 34 Year
  Sex: Female
  Weight: 76.5 kg

DRUGS (3)
  1. PREDNISOLONE. [Suspect]
     Active Substance: PREDNISOLONE
     Indication: RENAL TRANSPLANT
     Dosage: 2.5-5 MG DAILY, LOW DOSE
  2. MYCOPHENOLIC ACID. [Suspect]
     Active Substance: MYCOPHENOLIC ACID
     Indication: RENAL TRANSPLANT
     Dosage: AVERAGE DOSE 750 MG TWICE DAILY
  3. TACROLIMUS. [Suspect]
     Active Substance: TACROLIMUS
     Indication: RENAL TRANSPLANT
     Dosage: TARGET TROUGH LEVEL 4-6 NG/DL

REACTIONS (1)
  - Diabetes mellitus [Recovering/Resolving]
